FAERS Safety Report 15632993 (Version 1)
Quarter: 2018Q4

REPORT INFORMATION
  Report Type: Spontaneous
  Country: US (occurrence: US)
  Receive Date: 20181113
  Receipt Date: 20181113
  Transmission Date: 20190205
  Serious: Yes (Other)
  Sender: FDA-Public Use
  Company Number: None

PATIENT
  Age: 66 Year
  Sex: Female
  Weight: 60.75 kg

DRUGS (4)
  1. ROSUVASTATIN CALCIUM 5MG [Suspect]
     Active Substance: ROSUVASTATIN CALCIUM
     Indication: BLOOD CHOLESTEROL INCREASED
     Dosage: ?          QUANTITY:1 TABLET(S);?
     Route: 048
     Dates: start: 20180205, end: 20180301
  2. NAPROXEN. [Concomitant]
     Active Substance: NAPROXEN
  3. LIVOLO 1 MG, [Concomitant]
  4. COENZYME Q10 [Concomitant]
     Active Substance: UBIDECARENONE

REACTIONS (8)
  - Pyrexia [None]
  - Product substitution issue [None]
  - Dysgeusia [None]
  - Headache [None]
  - Fatigue [None]
  - Muscular weakness [None]
  - Gastrointestinal disorder [None]
  - Gastric disorder [None]

NARRATIVE: CASE EVENT DATE: 20180205
